FAERS Safety Report 25024749 (Version 1)
Quarter: 2025Q1

REPORT INFORMATION
  Report Type: Spontaneous
  Country: US (occurrence: US)
  Receive Date: 20250228
  Receipt Date: 20250228
  Transmission Date: 20250408
  Serious: No
  Sender: BAUSCH AND LOMB
  Company Number: US-BAUSCHBL-2025BNL003109

PATIENT
  Age: 75 Year
  Sex: Male

DRUGS (3)
  1. LATANOPROST [Suspect]
     Active Substance: LATANOPROST
     Indication: Intraocular pressure increased
     Route: 047
     Dates: start: 20250217
  2. IVIZIA DRY EYE [Concomitant]
     Active Substance: POVIDONE
     Indication: Product used for unknown indication
  3. DORZOLAMIDE\TIMOLOL [Concomitant]
     Active Substance: DORZOLAMIDE\TIMOLOL
     Indication: Product used for unknown indication

REACTIONS (3)
  - Eye irritation [Unknown]
  - Ocular hyperaemia [Unknown]
  - Dry eye [Unknown]

NARRATIVE: CASE EVENT DATE: 20250201
